FAERS Safety Report 7824380-X (Version None)
Quarter: 2011Q4

REPORT INFORMATION
  Report Type: 
  Country: None (occurrence: None)
  Receive Date: 20111019
  Receipt Date: 20111011
  Transmission Date: 20120403
  Serious: Yes (Other)
  Sender: FDA-Public Use
  Company Number: FR-BRISTOL-MYERS SQUIBB COMPANY-16070922

PATIENT
  Age: 71 Year
  Sex: Female
  Weight: 87 kg

DRUGS (8)
  1. METFORMIN HCL [Suspect]
     Indication: DIABETES MELLITUS
     Dosage: 2 DF = 500 UNM
     Route: 048
     Dates: start: 20100215, end: 20100329
  2. LIORESAL [Concomitant]
     Indication: HYPERTONIA
     Route: 048
     Dates: start: 20090407
  3. POLYETHYLENE GLYCOL [Concomitant]
     Indication: CONSTIPATION
     Dosage: STRENGTH:10 G,MACROGOL 4000
     Route: 048
     Dates: start: 20090407
  4. EZETIMIBE [Concomitant]
     Indication: HYPERCHOLESTEROLAEMIA
     Route: 048
     Dates: start: 20090407
  5. DITROPAN [Concomitant]
     Route: 048
     Dates: start: 20090407
  6. ZOPICLONE [Concomitant]
     Indication: INSOMNIA
     Route: 048
     Dates: start: 20090407
  7. ACETAMINOPHEN [Concomitant]
     Indication: BACK PAIN
     Route: 048
     Dates: start: 20090407
  8. TUSSIDANE [Suspect]
     Indication: COUGH
     Dosage: 1 DF = 3 SPOONS,STRENGTH:55
     Route: 048
     Dates: start: 20100215, end: 20100220

REACTIONS (1)
  - ALLERGIC OEDEMA [None]
